FAERS Safety Report 17551936 (Version 1)
Quarter: 2020Q1

REPORT INFORMATION
  Report Type: Report from Study
  Country: US (occurrence: US)
  Receive Date: 20200317
  Receipt Date: 20200317
  Transmission Date: 20200409
  Serious: Yes (Other)
  Sender: FDA-Public Use
  Company Number: US-JAZZ-2019-US-016382

PATIENT
  Age: 35 Year
  Sex: Female

DRUGS (19)
  1. ADDERALL [Suspect]
     Active Substance: AMPHETAMINE ASPARTATE\AMPHETAMINE SULFATE\DEXTROAMPHETAMINE SACCHARATE\DEXTROAMPHETAMINE SULFATE
     Indication: PRODUCT USED FOR UNKNOWN INDICATION
  2. AZELASTINE. [Concomitant]
     Active Substance: AZELASTINE HYDROCHLORIDE
  3. DIVALPROEX [Concomitant]
     Active Substance: DIVALPROEX SODIUM
  4. CALCIUM CITRATE + D [Concomitant]
     Active Substance: CALCIUM CITRATE\CHOLECALCIFEROL
  5. LAMOTRIGINE. [Concomitant]
     Active Substance: LAMOTRIGINE
  6. FLUTICASONE PROPIONATE. [Concomitant]
     Active Substance: FLUTICASONE PROPIONATE
  7. EPIPEN [Concomitant]
     Active Substance: EPINEPHRINE
  8. MONTELUKAST SODIUM. [Concomitant]
     Active Substance: MONTELUKAST SODIUM
  9. PREDNISONE. [Concomitant]
     Active Substance: PREDNISONE
  10. PROAIR HFA [Concomitant]
     Active Substance: ALBUTEROL SULFATE
  11. XYREM [Suspect]
     Active Substance: SODIUM OXYBATE
     Dosage: 4.5 G, BID
     Route: 048
     Dates: start: 201907, end: 202002
  12. XYREM [Suspect]
     Active Substance: SODIUM OXYBATE
     Dosage: 3 GRAM, BID
     Route: 048
     Dates: start: 202003
  13. LORAZEPAM. [Concomitant]
     Active Substance: LORAZEPAM
  14. LATUDA [Concomitant]
     Active Substance: LURASIDONE HYDROCHLORIDE
  15. NORETHISTERONE [Concomitant]
     Active Substance: NORETHINDRONE
  16. CLONAZEPAM. [Concomitant]
     Active Substance: CLONAZEPAM
  17. XYREM [Suspect]
     Active Substance: SODIUM OXYBATE
     Indication: CATAPLEXY
     Dosage: DOSE ADJUSTMENT
     Route: 048
     Dates: start: 201901, end: 201907
  18. ALLEGRA ALLERGY [Concomitant]
     Active Substance: FEXOFENADINE HYDROCHLORIDE
  19. XYREM [Suspect]
     Active Substance: SODIUM OXYBATE
     Indication: NARCOLEPSY
     Dosage: 2.25 G, BID
     Route: 048
     Dates: start: 201812, end: 201901

REACTIONS (6)
  - Suicidal ideation [Recovered/Resolved]
  - Anxiety [Recovered/Resolved]
  - Weight decreased [Recovering/Resolving]
  - Stress [Not Recovered/Not Resolved]
  - Paraesthesia [Not Recovered/Not Resolved]
  - Depression [Recovered/Resolved]

NARRATIVE: CASE EVENT DATE: 202002
